FAERS Safety Report 9309807 (Version 1)
Quarter: 2013Q2

REPORT INFORMATION
  Report Type: Spontaneous
  Country: US (occurrence: US)
  Receive Date: 20130525
  Receipt Date: 20130525
  Transmission Date: 20140414
  Serious: Yes (Other)
  Sender: FDA-Public Use
  Company Number: US-BRISTOL-MYERS SQUIBB COMPANY-18587600

PATIENT
  Age: 73 Year
  Sex: Female
  Weight: 71.66 kg

DRUGS (19)
  1. BYDUREON 2MG VIAL + SYRINGE [Suspect]
     Indication: TYPE 2 DIABETES MELLITUS
     Route: 058
     Dates: start: 20130206
  2. BYETTA PEN DISPOSABLE [Suspect]
     Indication: TYPE 2 DIABETES MELLITUS
     Route: 058
     Dates: start: 2010, end: 20130205
  3. TOPROL [Concomitant]
     Indication: CARDIAC DISORDER
     Route: 048
  4. DIOVAN [Concomitant]
     Indication: CARDIAC DISORDER
     Route: 048
  5. CYMBALTA [Concomitant]
     Indication: ANXIETY
     Route: 048
  6. SYNTHROID [Concomitant]
     Indication: THYROID DISORDER
     Route: 048
  7. ATIVAN [Concomitant]
     Indication: SLEEP DISORDER
     Route: 048
  8. ROPINIROLE [Concomitant]
     Indication: RESTLESS LEGS SYNDROME
     Route: 048
  9. LIPITOR [Concomitant]
     Indication: BLOOD CHOLESTEROL INCREASED
     Route: 048
  10. FLONASE [Concomitant]
     Indication: SINUS CONGESTION
     Route: 055
  11. OMEPRAZOLE [Concomitant]
     Indication: GASTROOESOPHAGEAL REFLUX DISEASE
     Route: 048
  12. VAGIFEM [Concomitant]
     Indication: VULVOVAGINAL DRYNESS
     Route: 067
  13. RESTASIS [Concomitant]
     Indication: DRY EYE
     Route: 047
  14. AMIODARONE [Concomitant]
     Indication: CARDIAC DISORDER
     Route: 048
  15. VITAMIN D [Concomitant]
  16. ASPIRIN [Concomitant]
     Route: 048
  17. VITAMIN B12 [Concomitant]
  18. MAGNESIUM [Concomitant]
     Route: 048
  19. TUMS [Concomitant]
     Indication: NAUSEA

REACTIONS (3)
  - Dyspnoea [Not Recovered/Not Resolved]
  - Nausea [Recovering/Resolving]
  - Flatulence [Recovering/Resolving]
